FAERS Safety Report 8048982-3 (Version None)
Quarter: 2012Q1

REPORT INFORMATION
  Report Type: 
  Country: None (occurrence: None)
  Receive Date: 20120117
  Receipt Date: 20120111
  Transmission Date: 20120608
  Serious: No
  Sender: FDA-Public Use
  Company Number: US-PFIZER INC-2011299583

PATIENT
  Sex: Female
  Weight: 126 kg

DRUGS (19)
  1. PEPCID [Concomitant]
     Dosage: 20 MG, 2X/DAY
  2. LOTREL [Concomitant]
     Dosage: 10/20 MG, 1X/DAY
  3. SPIRIVA [Concomitant]
     Dosage: UNK, 1X/DAY
  4. SUTENT [Concomitant]
     Dosage: 50 MG, 1X/DAY
  5. TYLENOL PM [Concomitant]
     Dosage: (2 PILLS AT NIGHT)
  6. MORPHINE SULFATE [Suspect]
     Dosage: UNK
  7. OXYCODONE [Concomitant]
     Dosage: (10/325 MG) AS NEEDED
  8. NYSTATIN [Concomitant]
     Dosage: UNK
  9. LEVAQUIN [Suspect]
     Dosage: UNK
  10. CARAFATE [Concomitant]
     Dosage: UNK 4X/DAY
  11. ADVAIR DISKUS 100/50 [Concomitant]
     Dosage: 250/50, 2X/DAY
  12. FERROUS SULFATE [Concomitant]
     Dosage: 325 MG, 2X/DAY
  13. PHENERGAN [Concomitant]
     Dosage: 25 MG, AS NEEDED
  14. PRILOSEC [Concomitant]
     Dosage: 40 MG, 1X/DAY
  15. HYDROCODONE [Concomitant]
     Dosage: 10/325 MG, AS NEEDED
  16. FLEXERIL [Concomitant]
     Dosage: 10 MG, 4X/DAY
  17. PILOCARPINE [Concomitant]
     Dosage: 2% OPHTHALMIC SOLUTION, 4 TIMES DAILY
  18. DEMEROL [Suspect]
     Dosage: UNK
  19. CELEXA [Concomitant]
     Dosage: 40 MG, 1X/DAY

REACTIONS (1)
  - DRUG HYPERSENSITIVITY [None]
